FAERS Safety Report 9548799 (Version 1)
Quarter: 2013Q3

REPORT INFORMATION
  Report Type: Spontaneous
  Country: US (occurrence: None)
  Receive Date: 20130724
  Receipt Date: 20130724
  Transmission Date: 20140515
  Serious: Yes (Hospitalization)
  Sender: FDA-Public Use
  Company Number: PHEH2012US013318

PATIENT
  Age: 70 Year
  Sex: Female

DRUGS (2)
  1. FANAPT [Suspect]
     Dosage: 24 UKN, UNK
  2. LISINOPRIL (LISINOPRIL) [Concomitant]

REACTIONS (1)
  - Hypotension [None]
